FAERS Safety Report 4359694-1 (Version None)
Quarter: 2004Q2

REPORT INFORMATION
  Report Type: 
  Country: None (occurrence: None)
  Receive Date: 20040512
  Receipt Date: 20040430
  Transmission Date: 20050107
  Serious: Yes (Hospitalization, Other)
  Sender: FDA-Public Use
  Company Number: US-JNJFOC-20040205590

PATIENT
  Age: 49 Year
  Sex: Male

DRUGS (13)
  1. REMICADE [Suspect]
     Indication: CROHN'S DISEASE
     Dosage: 158.4 MG, 1 IN 1 TOTAL; INTRAVENOUS (SEE IMAGE)
     Route: 042
     Dates: start: 20031008
  2. REMICADE [Suspect]
     Indication: CROHN'S DISEASE
     Dosage: 158.4 MG, 1 IN 1 TOTAL; INTRAVENOUS (SEE IMAGE)
     Route: 042
     Dates: start: 20031024
  3. REMICADE [Suspect]
     Indication: CROHN'S DISEASE
     Dosage: 158.4 MG, 1 IN 1 TOTAL; INTRAVENOUS (SEE IMAGE)
     Route: 042
     Dates: start: 20031121
  4. MERCAPTOPURINE [Suspect]
     Indication: CROHN'S DISEASE
     Dosage: 50 MG
     Dates: start: 20031014
  5. PREDNISONE [Suspect]
     Indication: CROHN'S DISEASE
     Dosage: 40 MG
     Dates: start: 20030501
  6. TYLENOL ES (PARACETAMOL) [Concomitant]
  7. BENADRYL [Concomitant]
  8. K-DUR 10 [Concomitant]
  9. CHROMAGEN [Concomitant]
  10. FOLIC ACID [Concomitant]
  11. PROTONIX [Concomitant]
  12. CALCIUM CARBONATE [Concomitant]
  13. MULTI-VITAMIN [Concomitant]

REACTIONS (15)
  - ANAEMIA [None]
  - COCCIDIOIDOMYCOSIS [None]
  - CONDITION AGGRAVATED [None]
  - CROHN'S DISEASE [None]
  - FALL [None]
  - HYPOKALAEMIA [None]
  - IMMUNOSUPPRESSION [None]
  - INTERSTITIAL LUNG DISEASE [None]
  - LUNG CONSOLIDATION [None]
  - MUSCULOSKELETAL DISCOMFORT [None]
  - ORAL HAIRY LEUKOPLAKIA [None]
  - PULMONARY EMBOLISM [None]
  - PYREXIA [None]
  - TRANSAMINASES INCREASED [None]
  - UPPER RESPIRATORY TRACT INFECTION [None]
